FAERS Safety Report 11980688 (Version 2)
Quarter: 2016Q1

REPORT INFORMATION
  Report Type: Spontaneous
  Country: GB (occurrence: GB)
  Receive Date: 20160129
  Receipt Date: 20160217
  Transmission Date: 20160526
  Serious: Yes (Hospitalization)
  Sender: FDA-Public Use
  Company Number: GB-WATSON-2016-00880

PATIENT
  Age: 67 Year
  Sex: Male
  Weight: 85 kg

DRUGS (12)
  1. DARATUMUMAB [Suspect]
     Active Substance: DARATUMUMAB
     Indication: PLASMA CELL MYELOMA
     Dosage: UNK
     Route: 042
  2. DALTEPARIN [Concomitant]
     Active Substance: DALTEPARIN
     Dosage: 5000 IU, DAILY
     Route: 058
     Dates: start: 20151207, end: 20151207
  3. DALTEPARIN [Concomitant]
     Active Substance: DALTEPARIN
     Dosage: 5000 IU, DAILY
     Route: 058
     Dates: start: 20151130
  4. ASPIRIN. [Concomitant]
     Active Substance: ASPIRIN
     Indication: THROMBOSIS
     Dosage: 75 MG, UNK
     Route: 048
     Dates: start: 2014
  5. SIMVASTATIN. [Concomitant]
     Active Substance: SIMVASTATIN
     Indication: HYPERCHOLESTEROLAEMIA
     Dosage: 20 MG, DAILY
     Route: 048
     Dates: start: 2011
  6. ZOMETA [Concomitant]
     Active Substance: ZOLEDRONIC ACID
     Indication: MINERAL SUPPLEMENTATION
     Dosage: 4 MG, 1/WEEK
     Route: 042
     Dates: start: 20150519
  7. PREDNISOLONE (UNKNOWN) [Suspect]
     Active Substance: PREDNISOLONE
     Indication: PLASMA CELL MYELOMA
     Dosage: 125 MG, CYCLICAL;  ON DAYS 1-4.
     Route: 048
     Dates: start: 20151124, end: 20151127
  8. DALTEPARIN [Concomitant]
     Active Substance: DALTEPARIN
     Indication: THROMBOSIS
     Dosage: 5000 IU, DAILY
     Route: 058
     Dates: start: 20151209, end: 20151211
  9. DALTEPARIN [Concomitant]
     Active Substance: DALTEPARIN
     Dosage: 5000 IU, DAILY
     Route: 058
     Dates: start: 20151205, end: 20151205
  10. VELCADE [Suspect]
     Active Substance: BORTEZOMIB
     Indication: PLASMA CELL MYELOMA
     Dosage: 2.75 MG, CYCLICAL
     Route: 058
     Dates: start: 20151124, end: 20151222
  11. MELPHALAN [Suspect]
     Active Substance: MELPHALAN
     Indication: PLASMA CELL MYELOMA
     Dosage: 18 MG, CYCLICAL; DAYS 1 TO 4 OF EACH CYCLE.
     Route: 048
     Dates: start: 20151124, end: 20151127
  12. SELENIUM [Concomitant]
     Active Substance: SELENIUM
     Indication: NUTRITIONAL SUPPLEMENTATION
     Dosage: 200 ?G, QID
     Route: 048
     Dates: start: 201201

REACTIONS (1)
  - Sepsis [Recovered/Resolved]

NARRATIVE: CASE EVENT DATE: 20151130
